FAERS Safety Report 9663873 (Version 1)
Quarter: 2013Q4

REPORT INFORMATION
  Report Type: Spontaneous
  Country: JP (occurrence: JP)
  Receive Date: 20131101
  Receipt Date: 20131101
  Transmission Date: 20140711
  Serious: Yes (Other)
  Sender: FDA-Public Use
  Company Number: JP-ASTELLAS-2013JP011883

PATIENT
  Sex: Male

DRUGS (2)
  1. BETANIS [Suspect]
     Dosage: UNK
     Route: 048
     Dates: start: 201310
  2. URIEF [Concomitant]
     Route: 048

REACTIONS (1)
  - Arrhythmia [Unknown]
